FAERS Safety Report 4272631-3 (Version None)
Quarter: 2004Q1

REPORT INFORMATION
  Report Type: 
  Country: None (occurrence: None)
  Receive Date: 20040114
  Receipt Date: 20040114
  Transmission Date: 20041129
  Serious: Yes (Life-Threatening)
  Sender: FDA-Public Use
  Company Number: None

PATIENT
  Age: 71 Year
  Sex: Male

DRUGS (2)
  1. BALSALAZIDE 750MG 3 TABS TID [Suspect]
     Indication: COLITIS
  2. MERCAPTOPURINE [Suspect]

REACTIONS (1)
  - NEUTROPENIA [None]
